FAERS Safety Report 9024991 (Version 1)
Quarter: 2013Q1

REPORT INFORMATION
  Report Type: Spontaneous
  Country: RS (occurrence: None)
  Receive Date: 20130104
  Receipt Date: 20130104
  Transmission Date: 20140127
  Serious: Yes (Other)
  Sender: FDA-Public Use
  Company Number: 2012000285

PATIENT
  Age: 77 Year
  Sex: Male

DRUGS (5)
  1. ACEON (PERINDOPRIL ERBUMINE) TABLET [Suspect]
     Indication: HYPERTENSION
     Route: 048
     Dates: start: 201209, end: 201211
  2. HEMPOPRES (AMILORIDE HCL W/HYDROCHLOROTHIAZIDE) [Concomitant]
  3. CARDIOSPIRIN (ACETYLSALICYLIC ACID) [Concomitant]
  4. CORNELIN (LERCANIDIPINE) [Concomitant]
  5. SORTIS (ATORVASTATIN CALCIUM) [Concomitant]

REACTIONS (1)
  - Hypoaesthesia [None]
